FAERS Safety Report 21025012 (Version 1)
Quarter: 2022Q2

REPORT INFORMATION
  Report Type: Other
  Country: DE (occurrence: None)
  Receive Date: 20220629
  Receipt Date: 20220629
  Transmission Date: 20220721
  Serious: Yes (Hospitalization, Other)
  Sender: FDA-Public Use
  Company Number: DE-ROCHE-2477331

PATIENT
  Age: 40 Year
  Sex: Female

DRUGS (13)
  1. OCREVUS [Suspect]
     Active Substance: OCRELIZUMAB
     Indication: Relapsing-remitting multiple sclerosis
     Route: 042
     Dates: start: 20191107
  2. OCREVUS [Suspect]
     Active Substance: OCRELIZUMAB
     Route: 042
     Dates: start: 20191121
  3. OCREVUS [Suspect]
     Active Substance: OCRELIZUMAB
     Route: 042
  4. OCREVUS [Suspect]
     Active Substance: OCRELIZUMAB
     Dosage: THIRD MAINTENANCE DOSE
     Route: 042
     Dates: start: 20210525
  5. ATENOLOL [Concomitant]
     Active Substance: ATENOLOL
  6. ATENOLOL [Concomitant]
     Active Substance: ATENOLOL
  7. ELIQUIS [Concomitant]
     Active Substance: APIXABAN
  8. CHOLECALCIFEROL [Concomitant]
     Active Substance: CHOLECALCIFEROL
  9. SIMVASTATIN [Concomitant]
     Active Substance: SIMVASTATIN
  10. PREGABALIN [Concomitant]
     Active Substance: PREGABALIN
  11. PREGABALIN [Concomitant]
     Active Substance: PREGABALIN
     Dates: start: 20191101
  12. BACLOFEN [Concomitant]
     Active Substance: BACLOFEN
  13. COMIRNATY [Concomitant]
     Active Substance: TOZINAMERAN
     Dates: start: 20210316, end: 20210406

REACTIONS (36)
  - Dizziness [Recovered/Resolved]
  - Pallor [Recovered/Resolved]
  - Scleral hyperaemia [Recovered/Resolved]
  - Throat irritation [Recovered/Resolved]
  - Fatigue [Recovered/Resolved]
  - Pain [Recovered/Resolved]
  - Headache [Recovered/Resolved]
  - Neck pain [Recovered/Resolved]
  - Pyrexia [Recovered/Resolved]
  - Blood pressure decreased [Recovered/Resolved]
  - Heart rate increased [Recovered/Resolved]
  - Grip strength decreased [Recovered/Resolved]
  - Acne [Not Recovered/Not Resolved]
  - Middle insomnia [Recovering/Resolving]
  - Asthenia [Not Recovered/Not Resolved]
  - Inflammation [Recovered/Resolved]
  - Hair growth abnormal [Not Recovered/Not Resolved]
  - Nail growth abnormal [Not Recovered/Not Resolved]
  - Alopecia [Not Recovered/Not Resolved]
  - Injection site pain [Recovered/Resolved]
  - Injection site warmth [Recovered/Resolved]
  - SARS-CoV-2 antibody test negative [Not Recovered/Not Resolved]
  - Pain in extremity [Recovered/Resolved]
  - Dyspnoea [Recovered/Resolved]
  - Smear cervix abnormal [Unknown]
  - Muscle spasticity [Not Recovered/Not Resolved]
  - Peripheral paralysis [Not Recovered/Not Resolved]
  - Visual impairment [Recovered/Resolved]
  - Fatigue [Not Recovered/Not Resolved]
  - Abdominal pain upper [Recovered/Resolved]
  - COVID-19 [Recovered/Resolved]
  - Dyspnoea [Recovered/Resolved]
  - Nephrolithiasis [Recovered/Resolved]
  - Chills [Recovered/Resolved]
  - Vomiting [Recovered/Resolved]
  - C-reactive protein increased [Recovered/Resolved]

NARRATIVE: CASE EVENT DATE: 20191107
